FAERS Safety Report 8560048-2 (Version None)
Quarter: 2012Q3

REPORT INFORMATION
  Report Type: 
  Country: None (occurrence: None)
  Receive Date: 20120802
  Receipt Date: 20120727
  Transmission Date: 20120928
  Serious: Yes (Other)
  Sender: FDA-Public Use
  Company Number: US-ABBOTT-12P-163-0952247-00

PATIENT
  Sex: Female
  Weight: 45.4 kg

DRUGS (4)
  1. ETODOLAC [Suspect]
     Indication: PAPULE
     Dates: start: 20120601
  2. ETODOLAC [Suspect]
     Indication: DRY SKIN
  3. AVATHIOPRINE [Concomitant]
     Indication: CROHN'S DISEASE
  4. HUMIRA [Suspect]
     Indication: CROHN'S DISEASE
     Dates: start: 20120509

REACTIONS (6)
  - TENDERNESS [None]
  - GENITAL CYST [None]
  - GENITAL INFECTION [None]
  - IMPAIRED HEALING [None]
  - PAPULE [None]
  - DRY SKIN [None]
